FAERS Safety Report 14426939 (Version 1)
Quarter: 2018Q1

REPORT INFORMATION
  Report Type: Spontaneous
  Country: IN (occurrence: IN)
  Receive Date: 20180123
  Receipt Date: 20180123
  Transmission Date: 20180509
  Serious: Yes (Other)
  Sender: FDA-Public Use
  Company Number: IN-009507513-1801IND008985

PATIENT
  Age: 60 Year
  Sex: Male

DRUGS (1)
  1. BCG LIVE [Suspect]
     Active Substance: BACILLUS CALMETTE-GUERIN SUBSTRAIN TICE LIVE ANTIGEN
     Indication: BLADDER CANCER
     Dosage: UNK UNK, CYCLICAL
     Route: 043

REACTIONS (2)
  - Lymphadenopathy [Unknown]
  - Balanoposthitis infective [Recovered/Resolved with Sequelae]
